FAERS Safety Report 12287072 (Version 1)
Quarter: 2016Q2

REPORT INFORMATION
  Report Type: Report from Study
  Country: US (occurrence: US)
  Receive Date: 20160420
  Receipt Date: 20160420
  Transmission Date: 20160815
  Serious: Yes (Hospitalization, Other)
  Sender: FDA-Public Use
  Company Number: US-JNJFOC-20160418168

PATIENT
  Sex: Male
  Weight: 63 kg

DRUGS (6)
  1. IRON [Concomitant]
     Active Substance: IRON
  2. METOPROLOL. [Concomitant]
     Active Substance: METOPROLOL
  3. FISH OIL [Concomitant]
     Active Substance: FISH OIL
  4. LISINOPRIL. [Concomitant]
     Active Substance: LISINOPRIL
  5. FINASTERIDE. [Concomitant]
     Active Substance: FINASTERIDE
  6. IMBRUVICA [Suspect]
     Active Substance: IBRUTINIB
     Indication: CHRONIC LYMPHOCYTIC LEUKAEMIA
     Route: 048
     Dates: start: 20160317

REACTIONS (5)
  - Decreased appetite [Unknown]
  - Adverse event [Unknown]
  - Weight decreased [Unknown]
  - Deafness [Unknown]
  - Asthenia [Unknown]

NARRATIVE: CASE EVENT DATE: 2016
